FAERS Safety Report 4322870-8 (Version None)
Quarter: 2004Q1

REPORT INFORMATION
  Report Type: 
  Country: None (occurrence: None)
  Receive Date: 20040322
  Receipt Date: 20040303
  Transmission Date: 20041129
  Serious: Yes (Hospitalization)
  Sender: FDA-Public Use
  Company Number: 2004-113538-NL

PATIENT
  Age: 56 Year
  Sex: Female

DRUGS (8)
  1. MIRTAZAPINE [Suspect]
     Indication: DEPRESSION
     Dosage: SEE IMAGE
     Route: 048
     Dates: start: 20030610, end: 20030617
  2. MIRTAZAPINE [Suspect]
     Indication: DEPRESSION
     Dosage: SEE IMAGE
     Route: 048
     Dates: start: 20030618, end: 20030707
  3. MIRTAZAPINE [Suspect]
     Indication: DEPRESSION
     Dosage: SEE IMAGE
     Route: 048
     Dates: start: 20030708, end: 20030710
  4. RISPERIDONE [Suspect]
     Dosage: SEE IMAGE
     Route: 048
     Dates: start: 20030710, end: 20030714
  5. RISPERIDONE [Suspect]
     Dosage: SEE IMAGE
     Route: 048
     Dates: start: 20030708
  6. RISPERIDONE [Suspect]
     Dosage: SEE IMAGE
     Route: 048
     Dates: start: 20030709
  7. LORAZEPAM [Suspect]
     Dosage: MG
     Route: 048
     Dates: end: 20030710
  8. REBOXETINE [Suspect]
     Dosage: 4 MG
     Route: 048
     Dates: start: 20030618, end: 20030708

REACTIONS (4)
  - BLADDER DISORDER [None]
  - DYSURIA [None]
  - HYPERHIDROSIS [None]
  - URINARY RETENTION [None]
